FAERS Safety Report 17949662 (Version 2)
Quarter: 2021Q2

REPORT INFORMATION
  Report Type: Spontaneous
  Country: CA (occurrence: CA)
  Receive Date: 20200626
  Receipt Date: 20210628
  Transmission Date: 20210717
  Serious: Yes (Other)
  Sender: FDA-Public Use
  Company Number: CA-TEVA-2020-CA-1792468

PATIENT
  Age: 65 Year
  Sex: Male
  Weight: 74 kg

DRUGS (9)
  1. LANSOPRAZOLE. [Concomitant]
     Active Substance: LANSOPRAZOLE
  2. CLONAZEPAM. [Concomitant]
     Active Substance: CLONAZEPAM
  3. LANTUS SOLOSTAR [Concomitant]
     Active Substance: INSULIN GLARGINE
  4. ATIVAN [Concomitant]
     Active Substance: LORAZEPAM
  5. MORPHINE [Concomitant]
     Active Substance: MORPHINE
  6. PRAZOSIN. [Concomitant]
     Active Substance: PRAZOSIN
  7. TEVA?FAMOTIDINE [Suspect]
     Active Substance: FAMOTIDINE
     Indication: GASTROOESOPHAGEAL REFLUX DISEASE
     Dosage: 40 MILLIGRAM DAILY;
     Route: 048
  8. LIDOCAINE. [Concomitant]
     Active Substance: LIDOCAINE
  9. EYE DROPS [Concomitant]
     Active Substance: UNSPECIFIED INGREDIENT

REACTIONS (15)
  - Blood glucose fluctuation [Unknown]
  - Insomnia [Unknown]
  - Anxiety [Unknown]
  - Balance disorder [Unknown]
  - Dyspepsia [Unknown]
  - Flatulence [Unknown]
  - Testicular pain [Unknown]
  - Urinary retention [Unknown]
  - Nausea [Unknown]
  - Haematochezia [Unknown]
  - Blood pressure fluctuation [Unknown]
  - Confusional state [Unknown]
  - Irritable bowel syndrome [Unknown]
  - Gastrointestinal haemorrhage [Unknown]
  - Abdominal distension [Unknown]
